FAERS Safety Report 5618385-7 (Version None)
Quarter: 2008Q1

REPORT INFORMATION
  Report Type: 
  Country: None (occurrence: None)
  Receive Date: 20080205
  Receipt Date: 20080205
  Transmission Date: 20080703
  Serious: Yes (Hospitalization)
  Sender: FDA-Public Use
  Company Number: None

PATIENT
  Age: 59 Year
  Sex: Female

DRUGS (7)
  1. HYDROCHLOROTHIAZIDE [Suspect]
     Indication: HYPERTENSION
     Dosage: 25 QD PO
     Route: 048
     Dates: start: 20070918, end: 20070928
  2. LOSARTAN POTASSIUM [Concomitant]
  3. FOLIC ACID [Concomitant]
  4. METFORMIN HCL [Concomitant]
  5. DILTIAZEM [Concomitant]
  6. SIMVASTATIN [Concomitant]
  7. GLIPIZIDE [Concomitant]

REACTIONS (1)
  - HYPONATRAEMIA [None]
